FAERS Safety Report 8338868-9 (Version None)
Quarter: 2012Q2

REPORT INFORMATION
  Report Type: 
  Country: None (occurrence: None)
  Receive Date: 20120504
  Receipt Date: 20120424
  Transmission Date: 20120825
  Serious: Yes (Hospitalization, Other)
  Sender: FDA-Public Use
  Company Number: TH-BRISTOL-MYERS SQUIBB COMPANY-14964472

PATIENT
  Age: 20 Year
  Sex: Female

DRUGS (6)
  1. ATIVAN [Concomitant]
     Dosage: 2 TABS;ADMINISTRED WITH SUDY DRUG ON 30JAN2010
     Dates: start: 20100107
  2. TRIHEXYPHENIDYL HCL [Concomitant]
     Dosage: ALSO 2MG  1/2 TABS BID ADMINISTRED WITH SUDY DRUG ON 30JAN2010
     Dates: start: 20091224
  3. RISPERDAL [Concomitant]
     Dosage: TABS,ADMINISTRED WITH SUDY DRUG ON 30JAN2010 ALSO RECEIVED 2MG 1/2TAB AND 2TAB HS
     Dates: start: 20091224
  4. CAFFEINE CITRATE [Concomitant]
     Dosage: BRAND=MATEINE
     Dates: start: 20101224
  5. ARIPIPRAZOLE [Suspect]
     Indication: SCHIZOPHRENIA
     Dosage: 29JAN2010-30JAN2010 01FEB2010-08FEB2010:8DAYS DOSE INCREA TO 30MG/D ON 01FEB10,DURATION:2DAYS
     Route: 048
     Dates: start: 20100129, end: 20100208
  6. FLUOXETINE [Concomitant]
     Dates: start: 20101224

REACTIONS (1)
  - PSYCHOTIC DISORDER [None]
